FAERS Safety Report 21327962 (Version 1)
Quarter: 2022Q3

REPORT INFORMATION
  Report Type: Report from Study
  Country: IT (occurrence: IT)
  Receive Date: 20220913
  Receipt Date: 20220913
  Transmission Date: 20221027
  Serious: Yes (Other)
  Sender: FDA-Public Use
  Company Number: IT-MYLANLABS-2022M1092773

PATIENT
  Age: 40 Year
  Sex: Female

DRUGS (1)
  1. SUNITINIB [Suspect]
     Active Substance: SUNITINIB
     Indication: Thymic carcinoma
     Dosage: 37.5 MILLIGRAM, QD (CONTINUOUS DAILY DOSING)
     Route: 065

REACTIONS (1)
  - Endocrine disorder [Unknown]
